FAERS Safety Report 15827583 (Version 1)
Quarter: 2019Q1

REPORT INFORMATION
  Report Type: Spontaneous
  Country: CA (occurrence: US)
  Receive Date: 20190115
  Receipt Date: 20190115
  Transmission Date: 20190417
  Serious: No
  Sender: FDA-Public Use
  Company Number: CA-ANIPHARMA-2018-US-010053

PATIENT
  Age: 42 Year
  Sex: Male

DRUGS (6)
  1. CLOZAPINE. [Suspect]
     Active Substance: CLOZAPINE
  2. ABILIFY [Suspect]
     Active Substance: ARIPIPRAZOLE
  3. FLUVOXAMINE (NON-SPECIFIC) [Suspect]
     Active Substance: FLUVOXAMINE
     Indication: SCHIZOPHRENIA
  4. PALIPERIDONE. [Suspect]
     Active Substance: PALIPERIDONE
     Route: 030
  5. REXULTI [Suspect]
     Active Substance: BREXPIPRAZOLE
     Dosage: REXUJTI 1,2,3,4 AS PER PM
  6. QUETIAPINE. [Suspect]
     Active Substance: QUETIAPINE

REACTIONS (4)
  - Apathy [Recovered/Resolved]
  - Loss of libido [Unknown]
  - Psychotic disorder [Recovered/Resolved]
  - Weight increased [Recovered/Resolved]

NARRATIVE: CASE EVENT DATE: 201712
